FAERS Safety Report 19572858 (Version 1)
Quarter: 2021Q3

REPORT INFORMATION
  Report Type: Spontaneous
  Country: NL (occurrence: NL)
  Receive Date: 20210716
  Receipt Date: 20210716
  Transmission Date: 20211014
  Serious: Yes (Death)
  Sender: FDA-Public Use
  Company Number: NL-TEVA-2021-NL-1932675

PATIENT
  Age: 69 Year
  Sex: Female
  Weight: 51 kg

DRUGS (3)
  1. NATRIUMTHIOSULFAAT / BRAND NAME NOT SPECIFIED [Concomitant]
     Dosage: 18 GRAMS, IV DURING HIPEC PROCEDURETHERAPY START DATE:THERAPY END DATE :ASKU
  2. NADROPARINE INJVLST  9500IE/ML / FRAXIPARINE INJVLST 2850IE/0,3ML  (95 [Concomitant]
     Dosage: INJECTION FLUID, 9500 IU/ML (UNITS PER MILLILITER)THERAPY START DATE :THERAPY END DATE:ASKU
  3. CISPLATINE INFUUS / BRAND NAME NOT SPECIFIED [Suspect]
     Active Substance: CISPLATIN
     Indication: OVARIAN CANCER
     Dosage: 150 MG FLUSHED INTRAPERITONEALLY
     Route: 033
     Dates: start: 20210609, end: 20210609

REACTIONS (3)
  - Leukopenia [Fatal]
  - Thrombocytopenia [Fatal]
  - Dyspnoea [Fatal]

NARRATIVE: CASE EVENT DATE: 20210611
